FAERS Safety Report 4379526-5 (Version None)
Quarter: 2004Q2

REPORT INFORMATION
  Report Type: 
  Country: None (occurrence: None)
  Receive Date: 20040614
  Receipt Date: 20040604
  Transmission Date: 20050107
  Serious: No
  Sender: FDA-Public Use
  Company Number: 2004-06-0230

PATIENT
  Age: 54 Year
  Sex: Male
  Weight: 91.173 kg

DRUGS (3)
  1. PEG-INTRON (PEGINTERFERON ALFA-2B)INJECTION POWDER [Suspect]
     Indication: HEPATITIS C
     Dosage: 150 MCG QW SUBCUTANEOUS
     Route: 058
     Dates: start: 20040101, end: 20040604
  2. REBETOL [Suspect]
     Indication: HEPATITIS C
     Dosage: 1200 MG QD ORAL
     Route: 048
     Dates: start: 20040101, end: 20040604
  3. NEXIUM [Concomitant]

REACTIONS (2)
  - RETINAL DETACHMENT [None]
  - VIRAL LOAD DECREASED [None]
